FAERS Safety Report 5569580-7 (Version None)
Quarter: 2007Q4

REPORT INFORMATION
  Report Type: 
  Country: None (occurrence: None)
  Receive Date: 20071220
  Receipt Date: 20071207
  Transmission Date: 20080405
  Serious: Yes (Other)
  Sender: FDA-Public Use
  Company Number: GB-RANBAXY-2007RR-10189

PATIENT

DRUGS (7)
  1. IBUPROFEN [Suspect]
     Indication: PSEUDOMONAS INFECTION
     Dosage: UNK
     Dates: start: 20030101, end: 20030101
  2. TOBRAMYCINE RPG 25MG/2.5ML SOLUTION INJECTABLE [Suspect]
     Indication: PSEUDOMONAS INFECTION
     Dosage: 8 MG/KG, QD
     Route: 042
     Dates: start: 20031101
  3. TOBRAMYCINE RPG 25MG/2.5ML SOLUTION INJECTABLE [Suspect]
     Indication: LUNG DISORDER
  4. AZITHROMYCINE RANBAXY 250 MG COMPRIME PELLICULE [Suspect]
     Indication: ANTIINFLAMMATORY THERAPY
     Dosage: UNK
     Dates: end: 20030101
  5. COLOMYCIN [Suspect]
     Indication: PSEUDOMONAS INFECTION
     Dosage: 2 MIU, TID
     Route: 042
     Dates: start: 20031101
  6. COLOMYCIN [Suspect]
     Indication: LUNG DISORDER
  7. COLOMYCIN [Suspect]
     Indication: CONDITION AGGRAVATED

REACTIONS (10)
  - BLOOD CREATININE INCREASED [None]
  - BLOOD UREA INCREASED [None]
  - DRUG INTERACTION [None]
  - DYSPEPSIA [None]
  - INFLUENZA LIKE ILLNESS [None]
  - ORAL INTAKE REDUCED [None]
  - POLYARTHRITIS [None]
  - RENAL FAILURE ACUTE [None]
  - VOMITING [None]
  - WEIGHT DECREASED [None]
